FAERS Safety Report 11920381 (Version 14)
Quarter: 2018Q3

REPORT INFORMATION
  Report Type: Report from Study
  Country: PA (occurrence: PA)
  Receive Date: 20160115
  Receipt Date: 20180920
  Transmission Date: 20181010
  Serious: Yes (Disabling, Other)
  Sender: FDA-Public Use
  Company Number: PHHY2015PA157901

PATIENT
  Age: 36 Year
  Sex: Male
  Weight: 74.83 kg

DRUGS (5)
  1. VASTAREL [Concomitant]
     Active Substance: TRIMETAZIDINE DIHYDROCHLORIDE
     Indication: GLAUCOMA
     Dosage: 1 DF, Q48H
     Route: 065
  2. TIMOLOL. [Concomitant]
     Active Substance: TIMOLOL
     Indication: PRODUCT USED FOR UNKNOWN INDICATION
     Route: 065
  3. TASIGNA [Suspect]
     Active Substance: NILOTINIB
     Indication: CHRONIC MYELOID LEUKAEMIA
     Dosage: 400 MG, BID (1 CAPSULE EVERY 12 HOURS)
     Route: 048
     Dates: start: 2012
  4. VASTAREL [Concomitant]
     Active Substance: TRIMETAZIDINE DIHYDROCHLORIDE
     Indication: HEADACHE
  5. VERAPAMIL [Suspect]
     Active Substance: VERAPAMIL HYDROCHLORIDE
     Indication: PRODUCT USED FOR UNKNOWN INDICATION
     Dosage: 120 MG, UNK
     Route: 065

REACTIONS (35)
  - Nasal congestion [Unknown]
  - Blindness unilateral [Unknown]
  - Thrombosis [Unknown]
  - Palpitations [Recovered/Resolved]
  - Facial pain [Unknown]
  - Haemoglobin increased [Recovered/Resolved]
  - Dizziness [Unknown]
  - Muscle spasms [Unknown]
  - Vomiting [Unknown]
  - Crying [Unknown]
  - Sneezing [Unknown]
  - Dysphonia [Unknown]
  - Fear [Unknown]
  - Cough [Unknown]
  - Eye injury [Recovered/Resolved]
  - Cataract [Unknown]
  - Feeling abnormal [Unknown]
  - Bone pain [Unknown]
  - Chills [Unknown]
  - Chest pain [Unknown]
  - Hyperhidrosis [Unknown]
  - Melaena [Unknown]
  - Blood pressure increased [Recovered/Resolved]
  - Arrhythmia [Recovering/Resolving]
  - Eye disorder [Recovered/Resolved]
  - Anaesthetic complication [Unknown]
  - Constipation [Unknown]
  - Acne [Unknown]
  - Tremor [Unknown]
  - Tachycardia [Recovered/Resolved]
  - Pain [Unknown]
  - Nasopharyngitis [Unknown]
  - Headache [Unknown]
  - Eye pain [Unknown]
  - Blood potassium decreased [Unknown]
